FAERS Safety Report 19310440 (Version 4)
Quarter: 2023Q2

REPORT INFORMATION
  Report Type: Report from Study
  Country: CN (occurrence: CN)
  Receive Date: 20210526
  Receipt Date: 20230502
  Transmission Date: 20230721
  Serious: Yes (Death, Life-Threatening)
  Sender: FDA-Public Use
  Company Number: CN-PFIZER INC-2021566769

PATIENT
  Age: 50 Year
  Sex: Male
  Weight: 90 kg

DRUGS (2)
  1. EPIRUBICIN [Suspect]
     Active Substance: EPIRUBICIN
     Indication: Hepatic cancer
     Dosage: 20 MG, SINGLE, INTRALESIONAL DRUG INJECTION
     Route: 026
     Dates: start: 20210420, end: 20210420
  2. LIPIODOL [Concomitant]
     Active Substance: ETHIODIZED OIL
     Dosage: 15 ML

REACTIONS (1)
  - Hepatic failure [Fatal]

NARRATIVE: CASE EVENT DATE: 20210511
